FAERS Safety Report 21805371 (Version 1)
Quarter: 2023Q1

REPORT INFORMATION
  Report Type: Other
  Country: None (occurrence: CN)
  Receive Date: 20230102
  Receipt Date: 20230102
  Transmission Date: 20230418
  Serious: Yes (Hospitalization, Other)
  Sender: FDA-Public Use
  Company Number: CN-Renata Limited-2136337

PATIENT
  Age: 60 Year
  Sex: Male

DRUGS (8)
  1. METOPROLOL TARTRATE [Suspect]
     Active Substance: METOPROLOL TARTRATE
     Indication: Product used for unknown indication
     Route: 065
  2. DACOMITINIB [Interacting]
     Active Substance: DACOMITINIB
     Route: 065
     Dates: start: 20220224, end: 20220227
  3. LEVAMLODIPINE MALEATE [Concomitant]
     Active Substance: LEVAMLODIPINE MALEATE
     Route: 065
  4. METFORMIN HYDROCHLORIDE [Concomitant]
     Active Substance: METFORMIN HYDROCHLORIDE
     Route: 065
  5. ACARBOSE [Concomitant]
     Active Substance: ACARBOSE
     Route: 065
  6. GEFITINIB [Concomitant]
     Active Substance: GEFITINIB
     Route: 048
     Dates: start: 2020, end: 202105
  7. PEMETREXED [Concomitant]
     Active Substance: PEMETREXED
     Route: 065
     Dates: start: 202106, end: 202110
  8. CARBOPLATIN [Concomitant]
     Active Substance: CARBOPLATIN
     Route: 065
     Dates: start: 202106, end: 202110

REACTIONS (2)
  - Liver injury [Recovered/Resolved]
  - Drug interaction [Recovered/Resolved]

NARRATIVE: CASE EVENT DATE: 20220101
